FAERS Safety Report 9959585 (Version 1)
Quarter: 2014Q1

REPORT INFORMATION
  Report Type: Spontaneous
  Country: US (occurrence: None)
  Receive Date: 20140228
  Receipt Date: 20140228
  Transmission Date: 20141002
  Serious: Yes (Other)
  Sender: FDA-Public Use
  Company Number: None

PATIENT
  Age: 50 Year
  Sex: Male
  Weight: 86.7 kg

DRUGS (5)
  1. TEMOZOLOMIDE [Suspect]
     Indication: GLIOBLASTOMA
     Dosage: 75MG/M2 140MG DAYS 1-28
     Dates: start: 20131230, end: 20140209
  2. NEXIUM [Concomitant]
  3. ACYCLOVIR [Concomitant]
  4. KEPPRA [Concomitant]
  5. LISINOPRIL [Concomitant]

REACTIONS (2)
  - Alanine aminotransferase increased [None]
  - Toxicity to various agents [None]
